FAERS Safety Report 6215031-9 (Version None)
Quarter: 2009Q2

REPORT INFORMATION
  Report Type: 
  Country: None (occurrence: None)
  Receive Date: 20090604
  Receipt Date: 20081107
  Transmission Date: 20091009
  Serious: No
  Sender: FDA-Public Use
  Company Number: US-ASTRAZENECA-2008UW25082

PATIENT
  Age: 55 Year
  Sex: Female

DRUGS (1)
  1. PRILOSEC [Suspect]
     Dosage: UNKNOWN
     Route: 048

REACTIONS (1)
  - THIRST [None]
